FAERS Safety Report 13696951 (Version 1)
Quarter: 2017Q2

REPORT INFORMATION
  Report Type: Spontaneous
  Country: US (occurrence: US)
  Receive Date: 20170627
  Receipt Date: 20170627
  Transmission Date: 20170830
  Serious: Yes (Other)
  Sender: FDA-Public Use
  Company Number: None

PATIENT
  Age: 69 Year
  Sex: Female
  Weight: 51.75 kg

DRUGS (2)
  1. MULTI-VITAMIN [Concomitant]
     Active Substance: .ALPHA.-TOCOPHEROL ACETATE, DL-\ASCORBIC ACID\CYANOCOBALAMIN\FLUORIDE ION\FOLIC ACID\NIACIN\PYRIDOXINE\RIBOFLAVIN\THIAMINE\VITAMIN A\VITAMIN D
  2. PROPYLENE GLYCO [Suspect]
     Active Substance: PROPYLENE GLYCOL
     Indication: THERAPEUTIC SKIN CARE TOPICAL
     Dates: end: 20170102

REACTIONS (6)
  - Application site rash [None]
  - Application site pruritus [None]
  - Application site haemorrhage [None]
  - Application site pain [None]
  - Dermatitis contact [None]
  - Cheilitis [None]

NARRATIVE: CASE EVENT DATE: 20170102
